FAERS Safety Report 12621937 (Version 1)
Quarter: 2016Q3

REPORT INFORMATION
  Report Type: Spontaneous
  Country: CN (occurrence: CN)
  Receive Date: 20160804
  Receipt Date: 20160804
  Transmission Date: 20161109
  Serious: Yes (Other)
  Sender: FDA-Public Use
  Company Number: CN-PFIZER INC-2016361830

PATIENT
  Age: 66 Year
  Sex: Female
  Weight: 48.7 kg

DRUGS (2)
  1. CYCLOPHOSPHAMIDE. [Suspect]
     Active Substance: CYCLOPHOSPHAMIDE
     Indication: BREAST CANCER
     Dosage: 800 MG, 1X/DAY
     Route: 041
     Dates: start: 20151224, end: 20151224
  2. PHARMORUBICIN [Suspect]
     Active Substance: EPIRUBICIN
     Indication: BREAST CANCER
     Dosage: 140 MG, 1X/DAY
     Route: 041
     Dates: start: 20151224

REACTIONS (3)
  - Cough [Unknown]
  - Hypokalaemia [Recovering/Resolving]
  - Pharyngeal oedema [Unknown]

NARRATIVE: CASE EVENT DATE: 20160109
